FAERS Safety Report 24065823 (Version 2)
Quarter: 2024Q3

REPORT INFORMATION
  Report Type: Spontaneous
  Country: PL (occurrence: PL)
  Receive Date: 20240709
  Receipt Date: 20240808
  Transmission Date: 20241017
  Serious: Yes (Death, Other)
  Sender: PFIZER
  Company Number: PL-ROCHE-3548234

PATIENT
  Age: 68 Year
  Sex: Male
  Weight: 84 kg

DRUGS (21)
  1. BEVACIZUMAB [Suspect]
     Active Substance: BEVACIZUMAB
     Indication: Hepatocellular carcinoma
     Dosage: 1260 MG, EVERY 3 WEEKS
     Route: 042
     Dates: start: 20240125
  2. BEVACIZUMAB [Suspect]
     Active Substance: BEVACIZUMAB
     Dosage: 1260 MG, EVERY 3 WEEKS (THE MOST RECENT DOSE OF BEVACIZUMAB (1260 MG) PRIOR TO AE )
     Route: 042
     Dates: start: 20240327
  3. TIRAGOLUMAB [Suspect]
     Active Substance: TIRAGOLUMAB
     Indication: Hepatocellular carcinoma
     Dosage: 600 MG, EVERY 3 WEEKS
     Route: 042
     Dates: start: 20240125
  4. TIRAGOLUMAB [Suspect]
     Active Substance: TIRAGOLUMAB
     Dosage: 600 MG, EVERY 3 WEEKS (THE MOST RECENT DOSE OF TIRAGOLUMAB PRIOR TO AE)
     Route: 042
     Dates: start: 20240327
  5. ATEZOLIZUMAB [Suspect]
     Active Substance: ATEZOLIZUMAB
     Indication: Hepatocellular carcinoma
     Dosage: 1200 MG, EVERY 3 WEEKS
     Route: 042
     Dates: start: 20240125
  6. ATEZOLIZUMAB [Suspect]
     Active Substance: ATEZOLIZUMAB
     Dosage: 1200 MG, EVERY 3 WEEKS (MOST RECENT DOSE OF ATEZOLIZUMAB (1200 MG) PRIOR TO AE)
     Route: 042
     Dates: start: 20240320
  7. ALBIOMIN [Concomitant]
     Indication: Hypoalbuminaemia
     Dosage: 500 ML
  8. ALBIOMIN [Concomitant]
     Indication: Hepatic cirrhosis
     Dosage: 500 ML, 1X/DAY
     Route: 042
     Dates: start: 20240417, end: 20240417
  9. ALBIOMIN [Concomitant]
     Dosage: 300 ML, 1X/DAY
     Route: 042
     Dates: start: 20240327, end: 20240327
  10. URSOPOL [Concomitant]
     Indication: Hepatic cirrhosis
     Dosage: 300 MG, 2X/DAY
     Route: 048
     Dates: start: 202201
  11. URSOPOL [Concomitant]
     Dosage: 300 MG, 2X/DAY
     Route: 048
  12. NASENSPRAY [Concomitant]
     Indication: Insomnia
     Dosage: 10 MG
     Route: 048
     Dates: start: 2022
  13. PROPRANOLOL [Concomitant]
     Active Substance: PROPRANOLOL HYDROCHLORIDE
     Dosage: 10 MG, 2X/DAY
     Route: 048
     Dates: start: 202201
  14. PROPRANOLOL [Concomitant]
     Active Substance: PROPRANOLOL HYDROCHLORIDE
     Dosage: 10 MG, 2X/DAY, GIVEN FOR PROPHYLAXIS IS YES
     Route: 048
  15. HEPA MERZ [ORNITHINE ASPARTATE] [Concomitant]
     Dosage: 3 G, 2X/DAY, SOLUTION
     Route: 048
     Dates: start: 20240418
  16. HEPA MERZ [ORNITHINE ASPARTATE] [Concomitant]
     Dosage: 10 G AS NECESSARY, EVERY 4 DAYS INJECTION
     Route: 042
     Dates: start: 20240414, end: 20240417
  17. ESOMEPRAZOLE MAGNESIUM [Concomitant]
     Active Substance: ESOMEPRAZOLE MAGNESIUM
     Dosage: 40 MG, 1X/DAY GIVEN FOR PROPHYLAXIS IS YES
     Route: 048
  18. ESOMEPRAZOLE MAGNESIUM [Concomitant]
     Active Substance: ESOMEPRAZOLE MAGNESIUM
     Dosage: 40 MG, 1X/DAY
     Route: 048
     Dates: start: 20240417
  19. XIFAXAN [Concomitant]
     Active Substance: RIFAXIMIN
     Dosage: 400 MG, 2X/DAY, GIVEN FOR PROPHYLAXIS IS YES
     Route: 048
  20. XIFAXAN [Concomitant]
     Active Substance: RIFAXIMIN
     Dosage: 400 MG, 2X/DAY
     Route: 048
     Dates: start: 20240417
  21. PREDNISONE [Concomitant]
     Active Substance: PREDNISONE
     Indication: Liver function test increased
     Dosage: 40 MG, 2X/DAY
     Route: 048
     Dates: start: 20240417

REACTIONS (4)
  - Death [Fatal]
  - Hyperthyroidism [Unknown]
  - Liver function test abnormal [Unknown]
  - Off label use [Unknown]

NARRATIVE: CASE EVENT DATE: 20240125
